FAERS Safety Report 6253880-1 (Version None)
Quarter: 2009Q3

REPORT INFORMATION
  Report Type: 
  Country: None (occurrence: None)
  Receive Date: 20090702
  Receipt Date: 20090622
  Transmission Date: 20100115
  Serious: Yes (Hospitalization)
  Sender: FDA-Public Use
  Company Number: PHHY2009FR20094

PATIENT
  Sex: Male

DRUGS (4)
  1. TEGRETOL-XR [Suspect]
     Dosage: 200 MG TID
     Route: 048
     Dates: start: 20090318
  2. TEGRETOL-XR [Suspect]
     Dosage: UNK
     Route: 048
     Dates: start: 20070414, end: 20090417
  3. AMOXICILLIN TRIHYDRATE [Concomitant]
     Dosage: 1 G, TID
     Dates: start: 20090327, end: 20090330
  4. NEURONTIN [Concomitant]
     Indication: NASOPHARYNGITIS
     Dosage: 800 MG, QID
     Dates: start: 20090327, end: 20090330

REACTIONS (17)
  - ASTHENIA [None]
  - DERMATITIS EXFOLIATIVE [None]
  - DRUG RASH WITH EOSINOPHILIA AND SYSTEMIC SYMPTOMS [None]
  - EOSINOPHILIA [None]
  - FACE OEDEMA [None]
  - GENERAL PHYSICAL HEALTH DETERIORATION [None]
  - HUMAN HERPES VIRUS 6 SEROLOGY POSITIVE [None]
  - HYPOTENSION [None]
  - LYMPHADENITIS [None]
  - PAIN [None]
  - PRURITUS [None]
  - PYREXIA [None]
  - RASH [None]
  - SEPSIS [None]
  - STAPHYLOCOCCAL SEPSIS [None]
  - TOXIC SKIN ERUPTION [None]
  - URTICARIA [None]
